FAERS Safety Report 10646198 (Version 1)
Quarter: 2014Q4

REPORT INFORMATION
  Report Type: Spontaneous
  Country: CH (occurrence: CH)
  Receive Date: 20141211
  Receipt Date: 20141211
  Transmission Date: 20150529
  Serious: Yes (Hospitalization)
  Sender: FDA-Public Use
  Company Number: CH-TEVA-526525ISR

PATIENT
  Age: 85 Year
  Sex: Female
  Weight: 70.8 kg

DRUGS (7)
  1. METFIN 500 MG [Concomitant]
     Dosage: 500 MILLIGRAM DAILY; CONTINUING
     Route: 048
  2. ZOLOFT 50 MG [Concomitant]
     Dosage: 50 MILLIGRAM DAILY; CONTINUING
     Route: 048
  3. SPIRIVA [Concomitant]
     Active Substance: TIOTROPIUM BROMIDE MONOHYDRATE
     Dosage: 1 DOSAGE FORMS DAILY; CONTINUING
     Route: 055
  4. SORTIS 20 MG [Concomitant]
     Dosage: 20 MILLIGRAM DAILY; CONTINUING
     Route: 048
  5. ASPIRIN CARDIO 100 MG [Concomitant]
     Dosage: 100 MILLIGRAM DAILY; CONTINUING
     Route: 048
  6. NITROLINGUAL [Concomitant]
     Active Substance: NITROGLYCERIN
     Dosage: IN RESERVE
     Route: 065
  7. CO-ENATEC [Suspect]
     Active Substance: ENALAPRIL MALEATE\HYDROCHLOROTHIAZIDE
     Indication: CARDIAC FAILURE
     Dosage: 1 DOSAGE FORMS DAILY; 1 DF = 20 MG ENALAPRIL MALEATE AND 12.5 MG HYDROCHLOROTHIAZIDE
     Route: 048
     Dates: start: 201409, end: 20140930

REACTIONS (3)
  - Hypokalaemia [Recovered/Resolved]
  - Metabolic alkalosis [Recovered/Resolved]
  - Retroperitoneal mass [Unknown]

NARRATIVE: CASE EVENT DATE: 20140930
